FAERS Safety Report 7331768-2 (Version None)
Quarter: 2011Q1

REPORT INFORMATION
  Report Type: 
  Country: None (occurrence: None)
  Receive Date: 20110304
  Receipt Date: 20110228
  Transmission Date: 20110831
  Serious: Yes (Death)
  Sender: FDA-Public Use
  Company Number: TN-SANOFI-AVENTIS-2011SA012761

PATIENT
  Age: 70 Year
  Sex: Male

DRUGS (11)
  1. PANTOPRAZOLE [Concomitant]
     Route: 048
     Dates: end: 20110226
  2. PLAVIX [Suspect]
     Route: 048
     Dates: start: 20110130, end: 20110226
  3. PLAVIX [Suspect]
     Indication: STENT PLACEMENT
     Route: 048
     Dates: start: 20110130, end: 20110226
  4. PLAVIX [Suspect]
     Route: 048
     Dates: start: 20110130, end: 20110226
  5. PLAVIX [Suspect]
     Indication: PERCUTANEOUS CORONARY INTERVENTION
     Route: 048
     Dates: start: 20110130, end: 20110226
  6. TAHOR [Concomitant]
     Route: 048
     Dates: end: 20110226
  7. BECOTIDE [Concomitant]
     Route: 055
     Dates: end: 20110226
  8. CORVASAL [Concomitant]
     Route: 048
     Dates: end: 20110226
  9. AMLOR [Concomitant]
     Route: 048
     Dates: end: 20110226
  10. ASPEGIC 325 [Concomitant]
     Route: 048
     Dates: start: 20110130, end: 20110226
  11. ESOMEPRAZOLE [Concomitant]
     Route: 048
     Dates: end: 20110226

REACTIONS (2)
  - THROMBOSIS IN DEVICE [None]
  - CORONARY ARTERY DISSECTION [None]
